FAERS Safety Report 22971504 (Version 2)
Quarter: 2023Q4

REPORT INFORMATION
  Report Type: Spontaneous
  Country: GB (occurrence: GB)
  Receive Date: 20230922
  Receipt Date: 20231108
  Transmission Date: 20240109
  Serious: Yes (Other)
  Sender: FDA-Public Use
  Company Number: GB-TAKEDA-2023TUS082037

PATIENT
  Sex: Female

DRUGS (6)
  1. LISDEXAMFETAMINE DIMESYLATE [Suspect]
     Active Substance: LISDEXAMFETAMINE DIMESYLATE
     Indication: Product used for unknown indication
     Dosage: 70 MILLIGRAM
     Route: 065
  2. LISDEXAMFETAMINE DIMESYLATE [Suspect]
     Active Substance: LISDEXAMFETAMINE DIMESYLATE
     Dosage: 70 MILLIGRAM
     Route: 065
  3. LISDEXAMFETAMINE DIMESYLATE [Suspect]
     Active Substance: LISDEXAMFETAMINE DIMESYLATE
     Indication: Product used for unknown indication
     Dosage: 30 MILLIGRAM
     Route: 065
  4. LISDEXAMFETAMINE DIMESYLATE [Suspect]
     Active Substance: LISDEXAMFETAMINE DIMESYLATE
     Dosage: 50 MILLIGRAM
     Route: 065
  5. LISDEXAMFETAMINE DIMESYLATE [Suspect]
     Active Substance: LISDEXAMFETAMINE DIMESYLATE
     Indication: Product used for unknown indication
     Dosage: 50 MILLIGRAM
     Route: 048
  6. DEXTROAMPHETAMINE SULFATE [Suspect]
     Active Substance: DEXTROAMPHETAMINE SULFATE
     Indication: Product used for unknown indication
     Dosage: UNK
     Route: 065

REACTIONS (23)
  - Altered state of consciousness [Unknown]
  - Feeling abnormal [Unknown]
  - Disturbance in attention [Unknown]
  - Drug ineffective [Unknown]
  - Speech disorder [Unknown]
  - Therapeutic product effect variable [Unknown]
  - Heart rate decreased [Unknown]
  - Taste disorder [Unknown]
  - Blood pressure decreased [Unknown]
  - Communication disorder [Unknown]
  - Mental disorder [Unknown]
  - Dissociation [Unknown]
  - Brain fog [Unknown]
  - Obsessive-compulsive disorder [Unknown]
  - Fatigue [Unknown]
  - Heart rate increased [Unknown]
  - Dry mouth [Unknown]
  - Insomnia [Unknown]
  - Decreased appetite [Unknown]
  - Dizziness [Unknown]
  - Urticaria [Unknown]
  - Blood pressure increased [Unknown]
  - Rash [Unknown]

NARRATIVE: CASE EVENT DATE: 20230821
